FAERS Safety Report 24132082 (Version 1)
Quarter: 2024Q3

REPORT INFORMATION
  Report Type: Spontaneous
  Country: GT (occurrence: GT)
  Receive Date: 20240724
  Receipt Date: 20240724
  Transmission Date: 20241016
  Serious: Yes (Death)
  Sender: PFIZER
  Company Number: GT-PFIZER INC-PV202400096144

PATIENT
  Age: 26 Year
  Sex: Male

DRUGS (1)
  1. BOSULIF [Suspect]
     Active Substance: BOSUTINIB MONOHYDRATE
     Indication: Chronic myeloid leukaemia
     Dosage: 300 MG (3 X 100 MG TABLETS)

REACTIONS (1)
  - Illness [Fatal]
